FAERS Safety Report 26012293 (Version 1)
Quarter: 2025Q4

REPORT INFORMATION
  Report Type: Spontaneous
  Country: EU (occurrence: EU)
  Receive Date: 20251107
  Receipt Date: 20251107
  Transmission Date: 20260118
  Serious: Yes (Hospitalization, Other)
  Sender: ABBVIE
  Company Number: EU-ABBVIE-6527536

PATIENT
  Age: 90 Year
  Sex: Male

DRUGS (1)
  1. OZURDEX [Suspect]
     Active Substance: DEXAMETHASONE
     Indication: Cystoid macular oedema
     Dosage: TIME INTERVAL: AS NECESSARY
     Route: 050

REACTIONS (4)
  - Retinal haemorrhage [Unknown]
  - Cystoid macular oedema [Not Recovered/Not Resolved]
  - Vascular shunt [Unknown]
  - Retinal injury [Unknown]
